FAERS Safety Report 4643019-8 (Version None)
Quarter: 2005Q2

REPORT INFORMATION
  Report Type: 
  Country: None (occurrence: None)
  Receive Date: 20050421
  Receipt Date: 20050408
  Transmission Date: 20051028
  Serious: Yes (Life-Threatening, Hospitalization)
  Sender: FDA-Public Use
  Company Number: 2005AP01543

PATIENT
  Age: 71 Year
  Sex: Female
  Weight: 56.9 kg

DRUGS (4)
  1. OMEPRAL [Suspect]
     Indication: REFLUX OESOPHAGITIS
     Dosage: 20 MG DAILY PO
     Route: 048
     Dates: start: 20050201, end: 20050219
  2. SELBEX [Concomitant]
  3. NAUZART [Concomitant]
  4. GASMOTIN [Concomitant]

REACTIONS (19)
  - ACIDOSIS [None]
  - ANAEMIA [None]
  - BASE EXCESS INCREASED [None]
  - BLOOD BICARBONATE DECREASED [None]
  - BLOOD CREATININE INCREASED [None]
  - BLOOD PH DECREASED [None]
  - BLOOD POTASSIUM INCREASED [None]
  - BLOOD UREA INCREASED [None]
  - FACE OEDEMA [None]
  - HAEMODIALYSIS [None]
  - HAEMOGLOBIN DECREASED [None]
  - HAEMORRHOIDAL HAEMORRHAGE [None]
  - LEUKOPENIA [None]
  - MALAISE [None]
  - NAUSEA [None]
  - PCO2 DECREASED [None]
  - RENAL IMPAIRMENT [None]
  - THROMBOCYTOPENIA [None]
  - URINE OUTPUT DECREASED [None]
